FAERS Safety Report 6195017-3 (Version None)
Quarter: 2009Q2

REPORT INFORMATION
  Report Type: 
  Country: None (occurrence: None)
  Receive Date: 20090519
  Receipt Date: 20090512
  Transmission Date: 20091009
  Serious: Yes (Other)
  Sender: FDA-Public Use
  Company Number: B0562042A

PATIENT
  Sex: Male
  Weight: 34 kg

DRUGS (8)
  1. RELENZA [Suspect]
     Indication: INFLUENZA
     Dosage: 10MG TWICE PER DAY
     Route: 055
     Dates: start: 20090119
  2. CELTECT [Concomitant]
     Dosage: 30MG PER DAY
     Route: 048
     Dates: start: 20010417
  3. ONON [Concomitant]
     Indication: ASTHMA
     Dosage: 225MG PER DAY
     Route: 048
     Dates: start: 20020410
  4. NAUZELIN [Concomitant]
     Indication: INFLUENZA
     Dosage: 30MG PER DAY
     Route: 048
     Dates: start: 20090119, end: 20090119
  5. POLARAMINE [Concomitant]
     Indication: INFLUENZA
     Dosage: 3MG PER DAY
     Route: 048
     Dates: start: 20090120, end: 20090124
  6. MUCOSOLVAN [Concomitant]
     Indication: INFLUENZA
     Dosage: 45MG PER DAY
     Route: 048
     Dates: start: 20090120, end: 20090124
  7. LAC B [Concomitant]
     Indication: INFLUENZA
     Dosage: 1.98G PER DAY
     Route: 048
     Dates: start: 20090120, end: 20090124
  8. BRICANYL [Concomitant]
     Indication: INFLUENZA
     Dosage: 6MG PER DAY
     Route: 048
     Dates: start: 20090120, end: 20090124

REACTIONS (4)
  - ABNORMAL BEHAVIOUR [None]
  - AMNESIA [None]
  - LOWER LIMB FRACTURE [None]
  - SKIN ULCER [None]
